FAERS Safety Report 14911906 (Version 1)
Quarter: 2018Q2

REPORT INFORMATION
  Report Type: Spontaneous
  Country: US (occurrence: US)
  Receive Date: 20180518
  Receipt Date: 20180518
  Transmission Date: 20180711
  Serious: No
  Sender: FDA-Public Use
  Company Number: US-ASTRAZENECA-2018SE52924

PATIENT
  Sex: Female
  Weight: 56.2 kg

DRUGS (13)
  1. TUDORZA PRESSAIR [Suspect]
     Active Substance: ACLIDINIUM BROMIDE
     Indication: ASTHMA
     Route: 055
  2. TUDORZA PRESSAIR [Suspect]
     Active Substance: ACLIDINIUM BROMIDE
     Indication: CHRONIC OBSTRUCTIVE PULMONARY DISEASE
     Route: 055
  3. NEXIUM [Suspect]
     Active Substance: ESOMEPRAZOLE MAGNESIUM
     Indication: COLON OPERATION
     Dosage: 40.0MG UNKNOWN
     Route: 048
     Dates: start: 2000
  4. ALLEGRA [Concomitant]
     Active Substance: FEXOFENADINE HYDROCHLORIDE
  5. IPRATROPIUM BROMIDE. [Concomitant]
     Active Substance: IPRATROPIUM BROMIDE
     Route: 045
  6. SYNTHROID [Concomitant]
     Active Substance: LEVOTHYROXINE SODIUM
     Dosage: 0.75UG UNKNOWN
  7. RESTASIS [Concomitant]
     Active Substance: CYCLOSPORINE
     Indication: EYE DISORDER
  8. TYLENOL NUMBER 3 [Concomitant]
     Indication: PAIN
     Dosage: ONCE IN A WHILE
  9. ARCATTA INHALER [Concomitant]
  10. KETOCONAZOLE. [Concomitant]
     Active Substance: KETOCONAZOLE
     Indication: PROPHYLAXIS
     Dosage: AT NIGHT
  11. TUDORZA PRESSAIR [Suspect]
     Active Substance: ACLIDINIUM BROMIDE
     Indication: DRUG HYPERSENSITIVITY
     Route: 055
  12. ALBUTEROL INHALER [Concomitant]
     Active Substance: ALBUTEROL
     Dosage: ONCE IN A WHILE, ONCE A WEEK OR SOMETHING
  13. LUNESTA [Concomitant]
     Active Substance: ESZOPICLONE
     Indication: SLEEP DISORDER
     Dosage: ONCE IN A WHILE

REACTIONS (13)
  - Product quality issue [Unknown]
  - Circumstance or information capable of leading to medication error [Unknown]
  - Asthma [Unknown]
  - Back pain [Unknown]
  - Dyspnoea [Unknown]
  - Hypersensitivity [Unknown]
  - Product use in unapproved indication [Unknown]
  - Intentional product misuse [Unknown]
  - Intercepted medication error [Unknown]
  - Lung disorder [Unknown]
  - Off label use [Unknown]
  - Drug dose omission [Unknown]
  - Device malfunction [Unknown]
